FAERS Safety Report 12239921 (Version 1)
Quarter: 2016Q2

REPORT INFORMATION
  Report Type: Spontaneous
  Country: US (occurrence: US)
  Receive Date: 20160405
  Receipt Date: 20160405
  Transmission Date: 20160815
  Serious: No
  Sender: FDA-Public Use
  Company Number: US-ROCHE-1701658

PATIENT
  Sex: Male

DRUGS (4)
  1. SAW PALMETTO [Concomitant]
     Active Substance: SAW PALMETTO
  2. CRANBERRY. [Concomitant]
     Active Substance: CRANBERRY
  3. ERIVEDGE [Suspect]
     Active Substance: VISMODEGIB
     Indication: BASAL CELL CARCINOMA
     Route: 048
     Dates: start: 20141020
  4. SALMON OIL [Concomitant]
     Active Substance: FISH OIL

REACTIONS (1)
  - Alopecia [Unknown]
